FAERS Safety Report 20769309 (Version 3)
Quarter: 2022Q2

REPORT INFORMATION
  Report Type: Report from Study
  Country: US (occurrence: US)
  Receive Date: 20220429
  Receipt Date: 20220517
  Transmission Date: 20220721
  Serious: Yes (Hospitalization)
  Sender: FDA-Public Use
  Company Number: US-GLAXOSMITHKLINE-US2022GSK068969

PATIENT

DRUGS (21)
  1. DOSTARLIMAB [Suspect]
     Active Substance: DOSTARLIMAB
     Indication: Endometrial cancer
     Dosage: 500 MG
     Dates: start: 20220208, end: 20220208
  2. DOSTARLIMAB [Suspect]
     Active Substance: DOSTARLIMAB
     Dosage: 500 MG
     Dates: start: 20220412, end: 20220412
  3. CARBOPLATIN [Suspect]
     Active Substance: CARBOPLATIN
     Indication: Endometrial cancer
     Dosage: 509 MG (5 AUC)
     Route: 042
     Dates: start: 20220208, end: 20220208
  4. CARBOPLATIN [Suspect]
     Active Substance: CARBOPLATIN
     Dosage: 497.5 MG
     Route: 042
     Dates: start: 20220412, end: 20220412
  5. PACLITAXEL [Suspect]
     Active Substance: PACLITAXEL
     Indication: Endometrial cancer
     Dosage: 175 MG/M2
     Route: 042
     Dates: start: 20220208, end: 20220208
  6. PACLITAXEL [Suspect]
     Active Substance: PACLITAXEL
     Dosage: 135 MG/M2
     Route: 042
     Dates: start: 20220412, end: 20220412
  7. RETIN-A [Concomitant]
     Active Substance: TRETINOIN
     Indication: Drug therapy
     Dosage: 0.05 %, PRN
     Route: 061
     Dates: start: 201809
  8. CLEOCIN LOTION [Concomitant]
     Indication: Rash
     Dosage: 1 %, PRN
     Route: 061
     Dates: start: 20220322, end: 20220329
  9. DEXAMETHASONE [Concomitant]
     Active Substance: DEXAMETHASONE
     Indication: Hypersensitivity
     Dosage: 4 MG
     Dates: start: 20220301
  10. ZYRTEC [Concomitant]
     Active Substance: CETIRIZINE HYDROCHLORIDE
     Indication: Hypersensitivity
     Dosage: 10 MG
     Dates: start: 20220301
  11. FOLIC ACID [Concomitant]
     Active Substance: FOLIC ACID
     Indication: Neuropathy peripheral
     Dosage: 1 MG, QD
     Dates: start: 20220322
  12. VITAMIN B12 [Concomitant]
     Active Substance: CYANOCOBALAMIN
     Indication: Neuropathy peripheral
     Dosage: UNK, QD
     Dates: start: 20220322
  13. ZOFRAN [Concomitant]
     Active Substance: ONDANSETRON HYDROCHLORIDE
     Indication: Nausea
     Dosage: 8 MG, PRN
     Dates: start: 20220208
  14. ZOFRAN [Concomitant]
     Active Substance: ONDANSETRON HYDROCHLORIDE
     Indication: Vomiting
  15. COMPAZINE [Concomitant]
     Active Substance: PROCHLORPERAZINE MALEATE
     Indication: Nausea
     Dosage: 10 MG, PRN
     Dates: start: 20220208
  16. COMPAZINE [Concomitant]
     Active Substance: PROCHLORPERAZINE MALEATE
     Indication: Vomiting
  17. ONDANSETRON [Concomitant]
     Active Substance: ONDANSETRON
     Indication: Product used for unknown indication
     Dosage: 4 MG
     Route: 042
     Dates: start: 20220420
  18. MAXIPIME [Concomitant]
     Active Substance: CEFEPIME HYDROCHLORIDE
     Indication: Product used for unknown indication
     Dosage: 2 G (2 G IN NORMAL SALINE 20 ML IV PUSH)
     Route: 042
     Dates: start: 20220420
  19. MAXIPIME [Concomitant]
     Active Substance: CEFEPIME HYDROCHLORIDE
     Dosage: 2 G (2 G IN NORMAL SALINE 50 ML EXTENDED INFUSION IVPB MINI BAG PLUSE
     Route: 040
     Dates: start: 20220420, end: 20220420
  20. VANCOMYCIN [Concomitant]
     Active Substance: VANCOMYCIN
     Indication: Product used for unknown indication
     Dosage: 1G/200 ML STERILE WATER IVPB PREMIX, U
     Dates: start: 20220420, end: 20220420
  21. DIPHENHYDRAMINE [Concomitant]
     Active Substance: DIPHENHYDRAMINE
     Indication: Product used for unknown indication
     Dosage: 25 MG, U
     Dates: start: 20220420

REACTIONS (1)
  - Leukocytosis [Recovered/Resolved]

NARRATIVE: CASE EVENT DATE: 20220420
